FAERS Safety Report 23283396 (Version 1)
Quarter: 2023Q4

REPORT INFORMATION
  Report Type: Spontaneous
  Country: US (occurrence: US)
  Receive Date: 20231211
  Receipt Date: 20231211
  Transmission Date: 20240109
  Serious: No
  Sender: FDA-Public Use
  Company Number: US-002147023-NVSC2023US261345

PATIENT
  Age: 41 Year
  Sex: Female

DRUGS (1)
  1. KESIMPTA [Suspect]
     Active Substance: OFATUMUMAB
     Indication: Multiple sclerosis
     Dosage: 20 MG (DAY 1, DAY 7, DAY 14, DAY 28, THEN MONTHLY)
     Route: 058
     Dates: start: 20231101

REACTIONS (3)
  - Chills [Recovered/Resolved]
  - Psychogenic blindness [Unknown]
  - Malaise [Recovered/Resolved]
